FAERS Safety Report 4436954-7 (Version None)
Quarter: 2004Q3

REPORT INFORMATION
  Report Type: 
  Country: None (occurrence: None)
  Receive Date: 20040830
  Receipt Date: 20030731
  Transmission Date: 20050211
  Serious: No
  Sender: FDA-Public Use
  Company Number: US-GLAXOSMITHKLINE-A0419707A

PATIENT
  Age: 53 Year
  Sex: Female
  Weight: 58.6 kg

DRUGS (1)
  1. BECONASE [Suspect]
     Route: 055

REACTIONS (2)
  - DRUG INEFFECTIVE [None]
  - HYPERSENSITIVITY [None]
